FAERS Safety Report 5144964-X (Version None)
Quarter: 2006Q4

REPORT INFORMATION
  Report Type: 
  Country: None (occurrence: None)
  Receive Date: 20061107
  Receipt Date: 20061026
  Transmission Date: 20070319
  Serious: Yes (Other)
  Sender: FDA-Public Use
  Company Number: FRWYE354227OCT06

PATIENT
  Sex: Male

DRUGS (4)
  1. ENBREL [Suspect]
     Indication: PSORIATIC ARTHROPATHY
     Route: 058
     Dates: start: 20011101, end: 20060928
  2. ENBREL [Suspect]
     Indication: UVEITIS
  3. APROVEL [Concomitant]
     Route: 048
     Dates: end: 20061007
  4. KETOPROFEN [Concomitant]
     Dosage: UNKNWON DAILY DOSE ON REQUEST
     Route: 048

REACTIONS (4)
  - PROSTATIC SPECIFIC ANTIGEN INCREASED [None]
  - PROSTATITIS [None]
  - SEPTIC SHOCK [None]
  - SERRATIA INFECTION [None]
